FAERS Safety Report 24798782 (Version 1)
Quarter: 2025Q1

REPORT INFORMATION
  Report Type: Report from Study
  Country: US (occurrence: US)
  Receive Date: 20250102
  Receipt Date: 20250102
  Transmission Date: 20250409
  Serious: Yes (Congenital Anomaly, Other)
  Sender: VIIV
  Company Number: US-VIIV HEALTHCARE-A0024445A

PATIENT
  Sex: Male
  Weight: 3.18 kg

DRUGS (1)
  1. ZIDOVUDINE [Suspect]
     Active Substance: ZIDOVUDINE
     Indication: Prophylaxis against HIV infection
     Dosage: 600 MG, QD
     Route: 064

REACTIONS (3)
  - Congenital torticollis [Unknown]
  - Hepatic function abnormal [Unknown]
  - Foetal exposure during pregnancy [Unknown]
